FAERS Safety Report 23284774 (Version 1)
Quarter: 2023Q4

REPORT INFORMATION
  Report Type: Spontaneous
  Country: US (occurrence: US)
  Receive Date: 20231211
  Receipt Date: 20231211
  Transmission Date: 20240110
  Serious: No
  Sender: FDA-Public Use
  Company Number: US-PERRIGO-23US006339

PATIENT
  Age: 74 Year
  Sex: Male
  Weight: 97.959 kg

DRUGS (7)
  1. GUAIFENESIN [Suspect]
     Active Substance: GUAIFENESIN
     Indication: Productive cough
     Dosage: 600 MG, Q 12HRS
     Route: 048
     Dates: start: 20230513, end: 20230525
  2. GUAIFENESIN [Suspect]
     Active Substance: GUAIFENESIN
     Indication: Cough
     Dosage: 600 MG, Q 12HRS
     Route: 048
     Dates: start: 20230526
  3. METOPROLOL [Concomitant]
     Active Substance: METOPROLOL
     Indication: Cardiac disorder
     Dosage: UNK
     Route: 065
     Dates: start: 2018
  4. XARELTO [Concomitant]
     Active Substance: RIVAROXABAN
     Indication: Anticoagulant therapy
     Dosage: 20 MG
     Route: 065
     Dates: start: 2019
  5. KLONOPIN [Concomitant]
     Active Substance: CLONAZEPAM
     Indication: Anxiety
     Dosage: UNK
     Route: 065
     Dates: start: 2013
  6. RISPERIDONE [Concomitant]
     Active Substance: RISPERIDONE
     Indication: Restlessness
     Dosage: UNK
     Route: 065
     Dates: start: 2013
  7. ATORVASTATIN [Concomitant]
     Active Substance: ATORVASTATIN
     Indication: Blood cholesterol abnormal
     Dosage: UNK
     Route: 065
     Dates: start: 202303

REACTIONS (2)
  - Therapeutic product effect decreased [Unknown]
  - Incorrect product administration duration [Unknown]

NARRATIVE: CASE EVENT DATE: 20230520
